FAERS Safety Report 17849057 (Version 1)
Quarter: 2020Q2

REPORT INFORMATION
  Report Type: Spontaneous
  Country: LB (occurrence: LB)
  Receive Date: 20200602
  Receipt Date: 20200602
  Transmission Date: 20200714
  Serious: Yes (Death, Other)
  Sender: FDA-Public Use
  Company Number: LB-SA-2020SA139619

PATIENT

DRUGS (1)
  1. IMIGLUCERASE [Suspect]
     Active Substance: IMIGLUCERASE
     Indication: GAUCHER^S DISEASE TYPE II
     Dosage: 60U/KG, EOW
     Route: 041

REACTIONS (1)
  - Sepsis [Fatal]
